FAERS Safety Report 24836101 (Version 5)
Quarter: 2025Q1

REPORT INFORMATION
  Report Type: Report from Study
  Country: US (occurrence: US)
  Receive Date: 20250113
  Receipt Date: 20250325
  Transmission Date: 20250408
  Serious: Yes (Other)
  Sender: UCB
  Company Number: US-UCBSA-2025001552

PATIENT
  Age: 25 Year
  Sex: Male
  Weight: 145.13 kg

DRUGS (1)
  1. BIMEKIZUMAB [Suspect]
     Active Substance: BIMEKIZUMAB
     Indication: Psoriasis
     Dosage: 320 MILLIGRAM, EV 4 WEEKS
     Route: 058
     Dates: start: 20241107

REACTIONS (6)
  - Pneumonia [Recovered/Resolved]
  - Atypical pneumonia [Unknown]
  - Viral infection [Recovered/Resolved]
  - Nasopharyngitis [Unknown]
  - Pyrexia [Unknown]
  - Intentional dose omission [Unknown]

NARRATIVE: CASE EVENT DATE: 20241230
